FAERS Safety Report 10669713 (Version 5)
Quarter: 2015Q1

REPORT INFORMATION
  Report Type: Spontaneous
  Country: US (occurrence: US)
  Receive Date: 20141222
  Receipt Date: 20150213
  Transmission Date: 20150720
  Serious: Yes (Other)
  Sender: FDA-Public Use
  Company Number: US-GSKJP-DK201209842002

PATIENT
  Age: 53 Year
  Sex: Male
  Weight: 80 kg

DRUGS (11)
  1. LACTULOSE. [Concomitant]
     Active Substance: LACTULOSE
     Dosage: 10 GM/15
  2. FUROSEMIDE. [Concomitant]
     Active Substance: FUROSEMIDE
     Route: 048
  3. FENTANYL. [Concomitant]
     Active Substance: FENTANYL
     Dosage: 25 MCG/HR
  4. MORPHINE SULFATE. [Concomitant]
     Active Substance: MORPHINE SULFATE
     Route: 048
  5. FLUOXETINE [Concomitant]
     Active Substance: FLUOXETINE\FLUOXETINE HYDROCHLORIDE
     Route: 048
  6. PROMACTA [Suspect]
     Active Substance: ELTROMBOPAG OLAMINE
     Indication: PRODUCT USED FOR UNKNOWN INDICATION
     Dosage: 25 MG, QD
  7. PANCREASE MT [Concomitant]
     Active Substance: PANCRELIPASE
     Route: 048
  8. PROPRANOLOL [Concomitant]
     Active Substance: PROPRANOLOL\PROPRANOLOL HYDROCHLORIDE
     Route: 048
  9. SPIRONOLACTONE. [Concomitant]
     Active Substance: SPIRONOLACTONE
     Route: 050
  10. PROMETHAZINE [Concomitant]
     Active Substance: PROMETHAZINE\PROMETHAZINE HYDROCHLORIDE
     Route: 048
  11. DOCUSATE [Concomitant]
     Active Substance: DOCUSATE
     Route: 048

REACTIONS (20)
  - Gastric disorder [Unknown]
  - Bone density decreased [Unknown]
  - Dizziness [Unknown]
  - Skin exfoliation [Unknown]
  - Loss of consciousness [Unknown]
  - Nausea [Unknown]
  - Tooth loss [Unknown]
  - Muscle spasms [Unknown]
  - Vomiting [Unknown]
  - Bone pain [Unknown]
  - Abasia [Recovered/Resolved]
  - Feeding disorder [Unknown]
  - Platelet count decreased [Unknown]
  - Abdominal pain [Unknown]
  - Fatigue [Unknown]
  - Drug dose omission [Unknown]
  - Hepatic pain [Unknown]
  - Activities of daily living impaired [Unknown]
  - Malaise [Unknown]
  - Anger [Unknown]

NARRATIVE: CASE EVENT DATE: 20120619
